FAERS Safety Report 9220392 (Version 1)
Quarter: 2013Q2

REPORT INFORMATION
  Report Type: Spontaneous
  Country: SE (occurrence: SE)
  Receive Date: 20130409
  Receipt Date: 20130409
  Transmission Date: 20140414
  Serious: Yes (Death, Hospitalization)
  Sender: FDA-Public Use
  Company Number: SE-ROCHE-1206917

PATIENT
  Age: 63 Year
  Sex: Female

DRUGS (2)
  1. ACTILYSE [Suspect]
     Indication: PULMONARY EMBOLISM
     Route: 042
     Dates: start: 20040726, end: 20040726
  2. SELOKEN [Concomitant]
     Route: 065

REACTIONS (2)
  - Cerebral haemorrhage [Fatal]
  - Loss of consciousness [Unknown]
